FAERS Safety Report 14855969 (Version 1)
Quarter: 2018Q2

REPORT INFORMATION
  Report Type: Spontaneous
  Country: US (occurrence: US)
  Receive Date: 20180507
  Receipt Date: 20180507
  Transmission Date: 20180711
  Serious: Yes (Other)
  Sender: FDA-Public Use
  Company Number: US-GLAXOSMITHKLINE-US2018076417

PATIENT
  Sex: Female

DRUGS (4)
  1. TUMERIC [Concomitant]
     Active Substance: HERBALS\TURMERIC
  2. PREDNISONE. [Concomitant]
     Active Substance: PREDNISONE
  3. BENLYSTA [Suspect]
     Active Substance: BELIMUMAB
     Indication: SYSTEMIC LUPUS ERYTHEMATOSUS
     Dosage: 200 MG, WE
     Route: 058
     Dates: start: 201712, end: 20180404
  4. GINGER. [Concomitant]
     Active Substance: GINGER

REACTIONS (3)
  - Systemic lupus erythematosus [Recovering/Resolving]
  - Drug dose omission [Unknown]
  - Arthralgia [Recovered/Resolved]
